FAERS Safety Report 19229400 (Version 1)
Quarter: 2021Q2

REPORT INFORMATION
  Report Type: Spontaneous
  Country: RO (occurrence: RO)
  Receive Date: 20210507
  Receipt Date: 20210507
  Transmission Date: 20210717
  Serious: Yes (Hospitalization)
  Sender: FDA-Public Use
  Company Number: RO-SA-2021SA148913

PATIENT
  Age: 45 Year
  Sex: Male

DRUGS (4)
  1. PIRAZINAMIDA [Concomitant]
     Active Substance: PYRAZINAMIDE
     Dosage: 1250 MG, QD
  2. ETAMBUTOL [ETHAMBUTOL] [Concomitant]
     Dosage: 1200 MG, QD
  3. RIFAMPICIN [Suspect]
     Active Substance: RIFAMPIN
     Dosage: 450 MG, QD
     Route: 048
     Dates: start: 20210105, end: 20210306
  4. ISONIASID [Concomitant]
     Active Substance: ISONIAZID
     Dosage: 250 MG, QD

REACTIONS (1)
  - Blood urea increased [Recovered/Resolved]

NARRATIVE: CASE EVENT DATE: 20210306
